FAERS Safety Report 9587950 (Version 2)
Quarter: 2013Q4

REPORT INFORMATION
  Report Type: Report from Study
  Country: TW (occurrence: TW)
  Receive Date: 20131003
  Receipt Date: 20131021
  Transmission Date: 20140711
  Serious: No
  Sender: FDA-Public Use
  Company Number: PHHY2012TW112669

PATIENT
  Age: 81 Year
  Sex: Male

DRUGS (32)
  1. AMN107 [Suspect]
     Dosage: UNK
  2. ESOMEPRAZOLE [Concomitant]
     Indication: GASTROOESOPHAGEAL REFLUX DISEASE
     Dosage: UNK
     Dates: end: 20100113
  3. LEVOCETIRIZINE [Concomitant]
     Indication: ALLERGY PROPHYLAXIS
     Dosage: UNK
     Dates: start: 20110117
  4. LEVOCETIRIZINE [Concomitant]
     Indication: RHINITIS
  5. CO-DIOVAN [Concomitant]
     Indication: HYPERTENSION
     Dosage: UNK
  6. ZOLPIDEM [Concomitant]
     Indication: INSOMNIA
     Dosage: UNK
  7. ACETAMINOPHEN [Concomitant]
     Indication: HEADACHE
     Dosage: UNK
     Dates: start: 20101129, end: 20101212
  8. ACETAMINOPHEN [Concomitant]
     Indication: INJURY
     Dosage: UNK
     Dates: start: 20110502, end: 20110512
  9. THEOPHYLLINE ANHYDROUS [Concomitant]
     Indication: ASTHMA
     Dosage: UNK
     Dates: start: 20110201, end: 20110222
  10. BROEN-C [Concomitant]
     Indication: RHINITIS
     Dosage: UNK
     Dates: start: 20110214, end: 20110221
  11. BROEN-C [Concomitant]
     Indication: LIGAMENT SPRAIN
  12. PIROXICAM [Concomitant]
     Indication: ECCHYMOSIS
     Dosage: UNK
     Dates: start: 20110301, end: 20110304
  13. PIROXICAM [Concomitant]
     Indication: LIGAMENT SPRAIN
  14. FLUDIAZEPAM [Concomitant]
     Indication: INSOMNIA
     Dosage: UNK
     Dates: start: 20110307, end: 20110314
  15. FLUVASTATIN [Concomitant]
     Indication: HYPERCHOLESTEROLAEMIA
     Dosage: UNK
     Dates: start: 20110321, end: 20111031
  16. FLUVASTATIN [Concomitant]
     Dosage: UNK
     Dates: start: 20111212
  17. PREDNISOLONE [Concomitant]
     Indication: ASTHMA
     Dosage: UNK
     Dates: start: 20110119, end: 20110125
  18. PREDNISOLONE [Concomitant]
     Dosage: UNK
     Dates: start: 20110201, end: 20110211
  19. PREDNISOLONE [Concomitant]
     Dosage: UNK
     Dates: start: 20110428, end: 20110514
  20. SYMBICORT [Concomitant]
     Indication: ASTHMA
     Dosage: UNK
     Dates: start: 20110119, end: 20110215
  21. SYMBICORT [Concomitant]
     Dosage: UNK
     Dates: start: 20110428, end: 20110528
  22. SALBUTAMOL [Concomitant]
     Indication: ASTHMA
     Dosage: UNK
     Dates: start: 20110119, end: 20110121
  23. THEOPHYLLINE [Concomitant]
     Indication: ASTHMA
     Dosage: UNK
     Dates: start: 20110102, end: 20110221
  24. MELOXICAM [Concomitant]
     Indication: LIGAMENT SPRAIN
     Dosage: UNK
     Dates: start: 20110222, end: 20110228
  25. MELOXICAM [Concomitant]
     Indication: ECCHYMOSIS
  26. SIMETHICONE [Concomitant]
     Indication: FLATULENCE
     Dosage: UNK
     Dates: start: 20111111, end: 20111117
  27. ALBUTEROL [Concomitant]
     Indication: ASTHMA
     Dosage: UNK
     Dates: end: 20110328
  28. SERRATIOPEPTIDASE [Concomitant]
     Indication: INJURY
     Dosage: UNK
     Dates: start: 20110502, end: 20110512
  29. CHLORAMPHENICOL [Concomitant]
     Indication: ALLERGY PROPHYLAXIS
     Dosage: UNK
     Dates: start: 20111014, end: 20111028
  30. NEOSTIGMINE METHYLSULFATE [Concomitant]
     Indication: ASTHENOPIA
     Dosage: UNK
     Dates: start: 20111014, end: 20111028
  31. DIPHENYLMETHANE DERIVATIVES [Concomitant]
     Indication: CONSTIPATION
     Dosage: UNK
     Dates: start: 20111111, end: 20111111
  32. SMECTA [Concomitant]
     Indication: GASTROOESOPHAGEAL REFLUX DISEASE
     Dosage: UNK
     Dates: start: 20101129, end: 20101212

REACTIONS (1)
  - Pyrexia [Unknown]
